FAERS Safety Report 8904397 (Version 1)
Quarter: 2012Q4

REPORT INFORMATION
  Report Type: 
  Country: US (occurrence: US)
  Receive Date: 20121112
  Receipt Date: 20121112
  Transmission Date: 20130627
  Serious: No
  Sender: FDA-Public Use
  Company Number: US-BAYER-2012-115262

PATIENT
  Age: 80 Year
  Sex: Female
  Weight: 72.56 kg

DRUGS (1)
  1. ALEVE CAPLET/TABLET,MIDOL EXTENDED RELIEF CAPLET [Suspect]
     Indication: BACK ACHE
     Dosage: 2 DF, UNK
     Route: 048
     Dates: start: 20121022

REACTIONS (2)
  - Lip swelling [Recovered/Resolved]
  - Rash pruritic [Recovered/Resolved]
